FAERS Safety Report 4646622-4 (Version None)
Quarter: 2005Q2

REPORT INFORMATION
  Report Type: 
  Country: None (occurrence: None)
  Receive Date: 20050427
  Receipt Date: 20050222
  Transmission Date: 20051028
  Serious: No
  Sender: FDA-Public Use
  Company Number: US-GLAXOSMITHKLINE-A0546737A

PATIENT
  Age: 30 Year
  Sex: Female

DRUGS (5)
  1. FLOVENT [Suspect]
     Indication: ASTHMA
     Dosage: 2PUFF TWICE PER DAY
     Route: 055
     Dates: start: 20020101, end: 20040401
  2. ADVAIR DISKUS 100/50 [Suspect]
     Indication: ASTHMA
     Route: 055
  3. BIRTH CONTROL PILL [Concomitant]
  4. VENTOLIN HFA [Concomitant]
  5. NEXIUM [Concomitant]

REACTIONS (1)
  - DRUG INEFFECTIVE [None]
